FAERS Safety Report 21610057 (Version 1)
Quarter: 2022Q4

REPORT INFORMATION
  Report Type: Spontaneous
  Country: FR (occurrence: FR)
  Receive Date: 20221117
  Receipt Date: 20221117
  Transmission Date: 20230112
  Serious: Yes (Hospitalization, Other)
  Sender: FDA-Public Use
  Company Number: None

PATIENT
  Age: 32 Year
  Sex: Male

DRUGS (1)
  1. PROPOFOL [Suspect]
     Active Substance: PROPOFOL
     Indication: General anaesthesia
     Dosage: 4,4 MCG/ML
     Route: 042
     Dates: start: 20220901, end: 20220901

REACTIONS (7)
  - Gait disturbance [Not Recovered/Not Resolved]
  - Depressed level of consciousness [Recovering/Resolving]
  - Paraesthesia [Not Recovered/Not Resolved]
  - Disorientation [Recovering/Resolving]
  - Fatigue [Not Recovered/Not Resolved]
  - Headache [Not Recovered/Not Resolved]
  - Amnesia [Not Recovered/Not Resolved]

NARRATIVE: CASE EVENT DATE: 20220901
